FAERS Safety Report 7822950-6 (Version None)
Quarter: 2011Q4

REPORT INFORMATION
  Report Type: 
  Country: None (occurrence: None)
  Receive Date: 20111018
  Receipt Date: 20110708
  Transmission Date: 20120403
  Serious: No
  Sender: FDA-Public Use
  Company Number: US-ASTRAZENECA-2010SE60504

PATIENT
  Age: 72 Year
  Sex: Female

DRUGS (3)
  1. METFORMIN HCL [Concomitant]
  2. PROVENTIL [Concomitant]
  3. SYMBICORT [Suspect]
     Indication: ASTHMA
     Dosage: 160/4.5 MCG 2 PUFFS BID
     Route: 055
     Dates: start: 20070101

REACTIONS (5)
  - DRUG DOSE OMISSION [None]
  - PULMONARY CONGESTION [None]
  - OSTEOPOROSIS [None]
  - DYSPNOEA [None]
  - COUGH [None]
